FAERS Safety Report 15620535 (Version 8)
Quarter: 2020Q3

REPORT INFORMATION
  Report Type: Report from Study
  Country: AU (occurrence: AU)
  Receive Date: 20181115
  Receipt Date: 20200728
  Transmission Date: 20201102
  Serious: Yes (Hospitalization, Other)
  Sender: FDA-Public Use
  Company Number: AU-IPSEN BIOPHARMACEUTICALS, INC.-2018-14809

PATIENT
  Age: 71 Year
  Sex: Female

DRUGS (7)
  1. LEVODOPA [Concomitant]
     Active Substance: LEVODOPA
     Indication: PARKINSON^S DISEASE
     Dosage: 50MG/200MG
  2. ROCALTROL [Concomitant]
     Active Substance: CALCITRIOL
     Indication: MINERAL SUPPLEMENTATION
  3. SOMATULINE AUTOGEL [Suspect]
     Active Substance: LANREOTIDE ACETATE
     Indication: ACROMEGALY
     Route: 058
     Dates: start: 20180404
  4. AZILECT [Concomitant]
     Active Substance: RASAGILINE MESYLATE
  5. CARBIDOPA. [Concomitant]
     Active Substance: CARBIDOPA
     Indication: PARKINSON^S DISEASE
  6. OSTELIN [Concomitant]
     Indication: VITAMIN SUPPLEMENTATION
  7. MIRTAZEPINE [Concomitant]
     Active Substance: MIRTAZAPINE
     Indication: ANXIETY
     Dosage: ONE QUARTER TABLET NOCTE PRN

REACTIONS (11)
  - Pyrexia [Unknown]
  - Dysstasia [Recovering/Resolving]
  - Hypertension [Not Recovered/Not Resolved]
  - Blood glucose decreased [Recovered/Resolved]
  - Lumbar vertebral fracture [Not Recovered/Not Resolved]
  - Uterine polyp [Recovered/Resolved]
  - Type 2 diabetes mellitus [Unknown]
  - Abdominal pain upper [Not Recovered/Not Resolved]
  - Pollakiuria [Not Recovered/Not Resolved]
  - Fall [Not Recovered/Not Resolved]
  - Fall [Unknown]

NARRATIVE: CASE EVENT DATE: 2018
